FAERS Safety Report 8271516 (Version 5)
Quarter: 2015Q1

REPORT INFORMATION
  Report Type: Report from Study
  Country: CA (occurrence: CA)
  Receive Date: 20111201
  Receipt Date: 20150319
  Transmission Date: 20150721
  Serious: Yes (Other)
  Sender: FDA-Public Use
  Company Number: PHHY2011CA103839

PATIENT
  Age: 52 Year
  Sex: Female

DRUGS (1)
  1. GILENYA [Suspect]
     Active Substance: FINGOLIMOD HYDROCHLORIDE
     Indication: RELAPSING-REMITTING MULTIPLE SCLEROSIS
     Dosage: 0.5 MG, QD
     Route: 048
     Dates: start: 20110824, end: 20121218

REACTIONS (10)
  - Fall [Unknown]
  - Monoplegia [Unknown]
  - Headache [Recovered/Resolved]
  - Hypokinesia [Unknown]
  - Feeling abnormal [Unknown]
  - Hypertension [Unknown]
  - Rib fracture [Unknown]
  - Upper limb fracture [Recovering/Resolving]
  - Balance disorder [Unknown]
  - Back pain [Unknown]

NARRATIVE: CASE EVENT DATE: 201111
